FAERS Safety Report 25894973 (Version 3)
Quarter: 2025Q4

REPORT INFORMATION
  Report Type: Report from Study
  Country: US (occurrence: US)
  Receive Date: 20251008
  Receipt Date: 20251128
  Transmission Date: 20260117
  Serious: Yes (Death, Hospitalization, Other)
  Sender: ACADIA PHARMACEUTICALS
  Company Number: US-ACADIA PHARMACEUTICALS INC.-ACA-2025-PIM-010953

PATIENT
  Age: 78 Year
  Sex: Female

DRUGS (39)
  1. NUPLAZID [Suspect]
     Active Substance: PIMAVANSERIN TARTRATE
     Indication: Parkinson^s disease psychosis
     Dosage: 34 MILLIGRAM, QD
     Route: 048
     Dates: start: 20240202, end: 20251113
  2. DONEPEZIL HYDROCHLORIDE [Concomitant]
     Active Substance: DONEPEZIL HYDROCHLORIDE
     Dosage: 5 MILLIGRAM
  3. DONEPEZIL HYDROCHLORIDE [Concomitant]
     Active Substance: DONEPEZIL HYDROCHLORIDE
     Dosage: 10 MILLIGRAM
  4. RYTARY [Concomitant]
     Active Substance: CARBIDOPA\LEVODOPA
  5. VITAMIN D3 [Concomitant]
     Active Substance: CHOLECALCIFEROL
     Dosage: 5,000 IU
  6. TYLENOL PM EXTRA STRENGTH [Concomitant]
     Active Substance: ACETAMINOPHEN\DIPHENHYDRAMINE HYDROCHLORIDE
  7. PREDNISONE [Concomitant]
     Active Substance: PREDNISONE
  8. MUPIROCIN [Concomitant]
     Active Substance: MUPIROCIN
  9. LORATADINE [Concomitant]
     Active Substance: LORATADINE
  10. LISINOPRIL [Concomitant]
     Active Substance: LISINOPRIL
  11. KRILL OIL OMEGA 3 [Concomitant]
  12. IRON [Concomitant]
     Active Substance: IRON
  13. CINNAMON [CINNAMOMUM VERUM] [Concomitant]
  14. MINERALS\VITAMINS [Concomitant]
     Active Substance: MINERALS\VITAMINS
  15. BIOTIN [Concomitant]
     Active Substance: BIOTIN
  16. ASPIRIN [Concomitant]
     Active Substance: ASPIRIN
  17. ATORVASTATIN [Concomitant]
     Active Substance: ATORVASTATIN
  18. ASCORBIC ACID [Concomitant]
     Active Substance: ASCORBIC ACID
  19. IBUPROFEN [Concomitant]
     Active Substance: IBUPROFEN
  20. CARBIDOPA\LEVODOPA [Concomitant]
     Active Substance: CARBIDOPA\LEVODOPA
  21. CITALOPRAM [Concomitant]
     Active Substance: CITALOPRAM
  22. MEMANTINE [Concomitant]
     Active Substance: MEMANTINE
  23. FUROSEMIDE [Concomitant]
     Active Substance: FUROSEMIDE
  24. TRAZODONE [Concomitant]
     Active Substance: TRAZODONE HYDROCHLORIDE
  25. PREGABALIN [Concomitant]
     Active Substance: PREGABALIN
  26. CALCIUM\VITAMIN D [Concomitant]
     Active Substance: CALCIUM\VITAMIN D
  27. MAGNACET [Concomitant]
     Active Substance: ACETAMINOPHEN\OXYCODONE HYDROCHLORIDE
  28. QUETIAPINE FUMARATE [Concomitant]
     Active Substance: QUETIAPINE FUMARATE
  29. QUETIAPINE FUMARATE [Concomitant]
     Active Substance: QUETIAPINE FUMARATE
  30. ATIVAN [Concomitant]
     Active Substance: LORAZEPAM
  31. DONEPEZIL [Concomitant]
     Active Substance: DONEPEZIL
  32. TYLENOL [Concomitant]
     Active Substance: ACETAMINOPHEN
  33. KRILL OIL [Concomitant]
     Active Substance: DIETARY SUPPLEMENT\KRILL OIL
  34. LIPITOR [Concomitant]
     Active Substance: ATORVASTATIN CALCIUM
  35. SINEMET [Concomitant]
     Active Substance: CARBIDOPA\LEVODOPA
  36. CELECOXIB [Concomitant]
     Active Substance: CELECOXIB
  37. LASIX [Concomitant]
     Active Substance: FUROSEMIDE
  38. LYRICA [Concomitant]
     Active Substance: PREGABALIN
  39. SEROQUEL [Concomitant]
     Active Substance: QUETIAPINE FUMARATE

REACTIONS (9)
  - Death [Fatal]
  - Failure to thrive [Not Recovered/Not Resolved]
  - Dementia [Not Recovered/Not Resolved]
  - Decreased appetite [Not Recovered/Not Resolved]
  - Drooling [Not Recovered/Not Resolved]
  - Contusion [Not Recovered/Not Resolved]
  - Skin abrasion [Not Recovered/Not Resolved]
  - Fall [Not Recovered/Not Resolved]
  - Urinary tract infection [Recovered/Resolved]

NARRATIVE: CASE EVENT DATE: 20250930
